FAERS Safety Report 13913788 (Version 1)
Quarter: 2017Q3

REPORT INFORMATION
  Report Type: Spontaneous
  Country: US (occurrence: US)
  Receive Date: 20170828
  Receipt Date: 20170828
  Transmission Date: 20171127
  Serious: No
  Sender: FDA-Public Use
  Company Number: US-ROCHE-1139369

PATIENT
  Age: 12 Year
  Sex: Male

DRUGS (3)
  1. NUTROPIN AQ [Suspect]
     Active Substance: SOMATROPIN
     Indication: GROWTH HORMONE DEFICIENCY
     Route: 058
     Dates: start: 20010419
  2. HUMALOG [Concomitant]
     Active Substance: INSULIN LISPRO
     Dosage: 2 UNITS
     Route: 065
  3. ULTRALENTE [Concomitant]
     Dosage: 4 UNITS
     Route: 065

REACTIONS (2)
  - Dry skin [Unknown]
  - Weight increased [Unknown]

NARRATIVE: CASE EVENT DATE: 20010925
